FAERS Safety Report 7784856-0 (Version None)
Quarter: 2011Q3

REPORT INFORMATION
  Report Type: 
  Country: None (occurrence: None)
  Receive Date: 20110928
  Receipt Date: 20110920
  Transmission Date: 20111222
  Serious: Yes (Hospitalization)
  Sender: FDA-Public Use
  Company Number: US-AMGEN-USASP2011046034

PATIENT
  Age: 19 Year
  Sex: Female
  Weight: 56.4 kg

DRUGS (6)
  1. PLAQUENIL [Concomitant]
     Dosage: UNK
  2. DILAUDID [Concomitant]
     Dosage: UNK
  3. ENBREL [Suspect]
     Indication: RHEUMATOID ARTHRITIS
     Dosage: 25 MG, 2 TIMES/WK
     Route: 058
     Dates: start: 20110823
  4. METHOTREXATE [Concomitant]
     Dosage: UNK
  5. PREVACID [Concomitant]
     Dosage: UNK
  6. ENBREL [Suspect]
     Dosage: 25 MG, 2 TIMES/WK
     Route: 058
     Dates: end: 20110805

REACTIONS (2)
  - HOSPITALISATION [None]
  - CLOSTRIDIAL INFECTION [None]
